FAERS Safety Report 6938678-0 (Version None)
Quarter: 2010Q3

REPORT INFORMATION
  Report Type: 
  Country: None (occurrence: None)
  Receive Date: 20100824
  Receipt Date: 20100810
  Transmission Date: 20110219
  Serious: Yes (Hospitalization)
  Sender: FDA-Public Use
  Company Number: PHHY2010US31939

PATIENT
  Sex: Male
  Weight: 88 kg

DRUGS (6)
  1. GLEEVEC [Suspect]
     Indication: GASTROINTESTINAL STROMAL TUMOUR
     Dosage: 400 MG, QD
     Route: 048
     Dates: start: 20090519, end: 20100524
  2. GLEEVEC [Suspect]
     Dosage: 400 MG DAILY
     Route: 048
     Dates: start: 20100528
  3. OMEPRAZOLE [Concomitant]
     Dosage: 20 MG DAILY
     Route: 048
     Dates: start: 20090804, end: 20100406
  4. CYCLOBENZAPRINE [Concomitant]
     Dosage: 10 MG, TID
     Route: 048
     Dates: start: 20090825, end: 20100406
  5. NITROGLYCERIN [Concomitant]
     Dosage: 250 MG/DAY
     Route: 048
     Dates: start: 20100308, end: 20100312
  6. OXYCODONE [Concomitant]
     Dosage: 10 MG, TID
     Route: 048
     Dates: start: 20091112

REACTIONS (3)
  - ABDOMINAL ABSCESS [None]
  - GASTROINTESTINAL ANASTOMOTIC LEAK [None]
  - PERICARDIAL EFFUSION [None]
